FAERS Safety Report 8231341-8 (Version None)
Quarter: 2012Q1

REPORT INFORMATION
  Report Type: 
  Country: None (occurrence: None)
  Receive Date: 20120323
  Receipt Date: 20120312
  Transmission Date: 20120608
  Serious: Yes (Hospitalization, Other)
  Sender: FDA-Public Use
  Company Number: PL-AMGEN-POLSP2012011953

PATIENT
  Sex: Female

DRUGS (4)
  1. ENBREL [Suspect]
     Indication: RHEUMATOID ARTHRITIS
     Dosage: 50 MG, WEEKLY
     Route: 058
     Dates: start: 20081231, end: 20100722
  2. ENBREL [Suspect]
     Dosage: 50 MG, WEEKLY
     Route: 058
     Dates: start: 20110819, end: 20111212
  3. METHOTREXATE [Concomitant]
     Dosage: UNK
     Route: 048
     Dates: end: 20101001
  4. METHOTREXATE [Concomitant]
     Dosage: UNK
     Route: 058
     Dates: start: 20101001, end: 20111212

REACTIONS (1)
  - DIFFUSE LARGE B-CELL LYMPHOMA [None]
